FAERS Safety Report 8942379 (Version 2)
Quarter: 2013Q2

REPORT INFORMATION
  Report Type: Spontaneous
  Country: CO (occurrence: CO)
  Receive Date: 20121204
  Receipt Date: 20130510
  Transmission Date: 20140414
  Serious: Yes (Other)
  Sender: FDA-Public Use
  Company Number: CO-PFIZER INC-2012303337

PATIENT
  Age: 67 Year
  Sex: Male

DRUGS (11)
  1. LYRICA [Suspect]
     Indication: CERVICAL MYELOPATHY
     Dosage: 225 MG (ONE CAPSULE OF 150 MG), 1X/DAY
     Route: 048
     Dates: start: 2005
  2. LYRICA [Suspect]
     Dosage: 75 MG (ONE CAPSULE OF 75 MG IN THE MORNING AND ONE CAPSULE OF 75 MG AT NIGHT), 2X/DAY
     Route: 048
     Dates: start: 2007
  3. ISOSORBIDE [Concomitant]
     Indication: HYPERTENSION
     Dosage: UNK, 1X/DAY
     Route: 048
     Dates: start: 2005
  4. NIFEDIPINE [Concomitant]
     Indication: HYPERTENSION
     Dosage: 20 MG, 1X/DAY
     Route: 048
     Dates: start: 1973, end: 20130417
  5. METOPROLOL [Concomitant]
     Indication: HYPERTENSION
     Dosage: 25 MG, UNK
     Dates: start: 2010
  6. METOPROLOL [Concomitant]
     Dosage: UNK, 1X/DAY
     Route: 048
     Dates: end: 20130417
  7. LOSARTAN [Concomitant]
     Indication: HYPERTENSION
     Dosage: 100 MG, 2X/DAY
     Route: 048
     Dates: start: 2010
  8. LOSARTAN [Concomitant]
     Dosage: UNK, 1X/DAY
     Route: 048
     Dates: end: 20130417
  9. EZETIMIBE [Concomitant]
     Indication: BLOOD CHOLESTEROL
     Dosage: 10 MG, 1X/DAY
     Dates: start: 20130412
  10. TELMISARTAN [Concomitant]
     Indication: HYPERTENSION
     Dosage: 80 MG, 1X/DAY
     Dates: start: 20130412
  11. NEBIVOLOL [Concomitant]
     Indication: HYPERTENSION
     Dosage: 5 MG, 1X/DAY
     Dates: start: 20130412

REACTIONS (9)
  - Movement disorder [Not Recovered/Not Resolved]
  - Fall [Unknown]
  - Drug dependence [Not Recovered/Not Resolved]
  - Dizziness [Not Recovered/Not Resolved]
  - Somnolence [Not Recovered/Not Resolved]
  - Abdominal discomfort [Not Recovered/Not Resolved]
  - Fatigue [Not Recovered/Not Resolved]
  - Off label use [Not Recovered/Not Resolved]
  - Drug ineffective for unapproved indication [Not Recovered/Not Resolved]
